FAERS Safety Report 12458345 (Version 1)
Quarter: 2016Q2

REPORT INFORMATION
  Report Type: Spontaneous
  Country: US (occurrence: US)
  Receive Date: 20160613
  Receipt Date: 20160613
  Transmission Date: 20160815
  Serious: No
  Sender: FDA-Public Use
  Company Number: US-GLENMARK PHARMACEUTICALS INC, USA.-2016GMK022836

PATIENT

DRUGS (4)
  1. MOMETASONE FUROATE. [Suspect]
     Active Substance: MOMETASONE FUROATE
     Indication: LIP SWELLING
     Dosage: 1 APPLICATION , TID
     Route: 061
     Dates: start: 20151027, end: 20160427
  2. AQUAPHOR [Concomitant]
     Active Substance: PETROLATUM
     Indication: PRODUCT USED FOR UNKNOWN INDICATION
     Dosage: UNK
     Route: 065
  3. SIMVASTATIN. [Concomitant]
     Active Substance: SIMVASTATIN
     Indication: BLOOD CHOLESTEROL ABNORMAL
     Dosage: UNK
     Route: 048
  4. BLISTEX [Concomitant]
     Active Substance: BENZOCAINE
     Indication: PRODUCT USED FOR UNKNOWN INDICATION
     Dosage: UNK
     Route: 065

REACTIONS (5)
  - Cheilitis [Not Recovered/Not Resolved]
  - Drug ineffective for unapproved indication [Unknown]
  - Skin exfoliation [Recovered/Resolved]
  - Application site erythema [Not Recovered/Not Resolved]
  - Oral herpes [Not Recovered/Not Resolved]
